FAERS Safety Report 23939786 (Version 1)
Quarter: 2024Q2

REPORT INFORMATION
  Report Type: Spontaneous
  Country: US (occurrence: US)
  Receive Date: 20240605
  Receipt Date: 20240605
  Transmission Date: 20240716
  Serious: No
  Sender: FDA-Public Use
  Company Number: US-Bion-013200

PATIENT
  Sex: Male

DRUGS (1)
  1. CALAMINE LOTION [Suspect]
     Active Substance: CALAMINE LOTION
     Indication: Product used for unknown indication
     Dosage: TWO TEASPOONS

REACTIONS (1)
  - Product use issue [Unknown]
